FAERS Safety Report 24138188 (Version 1)
Quarter: 2024Q3

REPORT INFORMATION
  Report Type: Spontaneous
  Country: US (occurrence: US)
  Receive Date: 20240725
  Receipt Date: 20240725
  Transmission Date: 20241017
  Serious: No
  Sender: SANOFI AVENTIS
  Company Number: US-SA-SAC20240723000425

PATIENT
  Sex: Female

DRUGS (11)
  1. DUPIXENT [Suspect]
     Active Substance: DUPILUMAB
     Indication: Dermatitis atopic
     Dosage: 300 MG, QOW
     Route: 058
  2. BIOTIN [Concomitant]
     Active Substance: BIOTIN
  3. FISH OIL [Concomitant]
     Active Substance: FISH OIL
  4. ARIPIPRAZOLE [Concomitant]
     Active Substance: ARIPIPRAZOLE
  5. ONDANSETRON [Concomitant]
     Active Substance: ONDANSETRON
  6. PANTOPRAZOLE [Concomitant]
     Active Substance: PANTOPRAZOLE
  7. PREDNISONE [Concomitant]
     Active Substance: PREDNISONE
  8. SERTRALINE HYDROCHLORIDE [Concomitant]
     Active Substance: SERTRALINE HYDROCHLORIDE
  9. TACROLIMUS [Concomitant]
     Active Substance: TACROLIMUS
  10. TRIAMCINOLONE [Concomitant]
     Active Substance: TRIAMCINOLONE
  11. PROBIOTICS NOS [Concomitant]
     Active Substance: PROBIOTICS NOS

REACTIONS (1)
  - Toothache [Not Recovered/Not Resolved]
